FAERS Safety Report 22633822 (Version 1)
Quarter: 2023Q2

REPORT INFORMATION
  Report Type: Spontaneous
  Country: DE (occurrence: None)
  Receive Date: 20230623
  Receipt Date: 20230623
  Transmission Date: 20230721
  Serious: Yes (Other)
  Sender: FDA-Public Use
  Company Number: 2023A139959

PATIENT
  Age: 38 Year
  Sex: Female
  Weight: 73 kg

DRUGS (1)
  1. OLAPARIB [Suspect]
     Active Substance: OLAPARIB
     Indication: Ovarian cancer
     Dosage: 150 MG TWICE A DAY, BUT WITH POOR COMPLIANCE
     Route: 048
     Dates: start: 20200801, end: 20230405

REACTIONS (3)
  - Dilated cardiomyopathy [Recovered/Resolved with Sequelae]
  - Cardiac output decreased [Recovered/Resolved with Sequelae]
  - Treatment noncompliance [Unknown]

NARRATIVE: CASE EVENT DATE: 20230405
